FAERS Safety Report 15903625 (Version 1)
Quarter: 2019Q1

REPORT INFORMATION
  Report Type: Spontaneous
  Country: GB (occurrence: GB)
  Receive Date: 20190203
  Receipt Date: 20190203
  Transmission Date: 20190417
  Serious: Yes (Disabling)
  Sender: FDA-Public Use
  Company Number: GB-ACCORD-105178

PATIENT
  Age: 33 Year
  Sex: Male
  Weight: 70 kg

DRUGS (2)
  1. LANSOPRAZOLE. [Concomitant]
     Active Substance: LANSOPRAZOLE
     Dates: start: 20180316
  2. ESCITALOPRAM [Suspect]
     Active Substance: ESCITALOPRAM OXALATE
     Indication: DEPRESSED MOOD
     Route: 048
     Dates: start: 20180326, end: 20180329

REACTIONS (1)
  - Pain in jaw [Recovering/Resolving]

NARRATIVE: CASE EVENT DATE: 20180326
